FAERS Safety Report 15235503 (Version 1)
Quarter: 2018Q4

REPORT INFORMATION
  Report Type: Spontaneous
  Country: US (occurrence: US)
  Receive Date: 20180803
  Receipt Date: 20180803
  Transmission Date: 20190204
  Serious: Yes (Other)
  Sender: FDA-Public Use
  Company Number: US-ACCORD-070295

PATIENT
  Age: 71 Year
  Sex: Female

DRUGS (2)
  1. CARBOPLATIN. [Suspect]
     Active Substance: CARBOPLATIN
     Indication: BREAST CANCER STAGE III
  2. PACLITAXEL/PACLITAXEL LIPOSOME [Suspect]
     Active Substance: PACLITAXEL
     Indication: BREAST CANCER STAGE III

REACTIONS (4)
  - Infection [Unknown]
  - Acute kidney injury [Unknown]
  - Abdominal discomfort [Unknown]
  - Off label use [Unknown]
